FAERS Safety Report 17341927 (Version 1)
Quarter: 2020Q1

REPORT INFORMATION
  Report Type: Spontaneous
  Country: US (occurrence: US)
  Receive Date: 20200129
  Receipt Date: 20200129
  Transmission Date: 20200409
  Serious: No
  Sender: FDA-Public Use
  Company Number: US-ALLERGAN-1918280US

PATIENT
  Age: 43 Year
  Sex: Female
  Weight: 73.47 kg

DRUGS (3)
  1. LAMOTRIGINE. [Concomitant]
     Active Substance: LAMOTRIGINE
     Indication: MIGRAINE
     Dosage: 150 MG, QAM
     Route: 065
     Dates: start: 201809
  2. BOTOX [Suspect]
     Active Substance: ONABOTULINUMTOXINA
     Indication: MIGRAINE
     Dosage: 31 UNITS, SINGLE
     Route: 030
     Dates: start: 20190423, end: 20190423
  3. ASPIRIN. [Concomitant]
     Active Substance: ASPIRIN
     Indication: MIGRAINE
     Dosage: UNK
     Route: 065
     Dates: start: 2017

REACTIONS (8)
  - Balance disorder [Unknown]
  - Hemiparesis [Recovered/Resolved]
  - Headache [Unknown]
  - Hypotension [Recovered/Resolved]
  - Dysarthria [Not Recovered/Not Resolved]
  - Dizziness [Recovered/Resolved]
  - Nausea [Recovered/Resolved]
  - Influenza like illness [Unknown]

NARRATIVE: CASE EVENT DATE: 20190423
